FAERS Safety Report 19799665 (Version 3)
Quarter: 2022Q1

REPORT INFORMATION
  Report Type: Spontaneous
  Country: GB (occurrence: GB)
  Receive Date: 20210907
  Receipt Date: 20220329
  Transmission Date: 20220423
  Serious: Yes (Other)
  Sender: FDA-Public Use
  Company Number: GB-IPSEN BIOSCIENCE, INC.-MER-2017-000374

PATIENT
  Age: 17 Year
  Sex: Female

DRUGS (17)
  1. ONIVYDE [Suspect]
     Active Substance: IRINOTECAN HYDROCHLORIDE
     Indication: Desmoplastic small round cell tumour
     Route: 065
  2. ONIVYDE [Suspect]
     Active Substance: IRINOTECAN HYDROCHLORIDE
     Indication: Off label use
  3. CYCLOPHOSPHAMIDE [Suspect]
     Active Substance: CYCLOPHOSPHAMIDE
     Indication: Desmoplastic small round cell tumour
     Route: 065
  4. DOCETAXEL [Suspect]
     Active Substance: DOCETAXEL
     Indication: Desmoplastic small round cell tumour
     Route: 065
  5. GEMCITABINE [Suspect]
     Active Substance: GEMCITABINE
     Indication: Desmoplastic small round cell tumour
     Dosage: 3 LINES OF CHEMOTHERAPY
     Route: 065
  6. TEMOZOLOMIDE [Suspect]
     Active Substance: TEMOZOLOMIDE
     Indication: Desmoplastic small round cell tumour
     Route: 065
  7. TOPOTECAN [Suspect]
     Active Substance: TOPOTECAN HYDROCHLORIDE
     Indication: Desmoplastic small round cell tumour
     Route: 065
  8. VINCRISTINE [Suspect]
     Active Substance: VINCRISTINE
     Indication: Desmoplastic small round cell tumour
     Dosage: 1 UNIT, 4 CYCLES
     Route: 042
  9. VINORELBINE [Suspect]
     Active Substance: VINORELBINE TARTRATE
     Indication: Desmoplastic small round cell tumour
     Route: 065
  10. CYCLIZINE [Suspect]
     Active Substance: CYCLIZINE
     Indication: Product used for unknown indication
     Route: 065
  11. MELATONIN [Suspect]
     Active Substance: MELATONIN
     Indication: Product used for unknown indication
     Route: 065
  12. ONDANSETRON [Suspect]
     Active Substance: ONDANSETRON
     Indication: Product used for unknown indication
     Route: 065
  13. IFOSFAMIDE [Suspect]
     Active Substance: IFOSFAMIDE
     Indication: Desmoplastic small round cell tumour
  14. SULFAMETHOXAZOLE\TRIMETHOPRIM [Concomitant]
     Active Substance: SULFAMETHOXAZOLE\TRIMETHOPRIM
     Indication: Product used for unknown indication
     Route: 065
  15. DACTINOMYCIN [Concomitant]
     Active Substance: DACTINOMYCIN
     Indication: Product used for unknown indication
  16. DOXORUBICIN [Concomitant]
     Active Substance: DOXORUBICIN
     Indication: Desmoplastic small round cell tumour
  17. PAZOPANIB HYDROCHLORIDE [Concomitant]
     Active Substance: PAZOPANIB HYDROCHLORIDE
     Indication: Product used for unknown indication
     Route: 065

REACTIONS (8)
  - Ascites [Recovering/Resolving]
  - Desmoplastic small round cell tumour [Unknown]
  - Malignant neoplasm progression [Unknown]
  - Metastases to liver [Unknown]
  - Metastases to peritoneum [Unknown]
  - Metastases to lymph nodes [Unknown]
  - Drug ineffective [Unknown]
  - Off label use [Unknown]

NARRATIVE: CASE EVENT DATE: 20170801
